FAERS Safety Report 9657663 (Version 2)
Quarter: 2013Q4

REPORT INFORMATION
  Report Type: Spontaneous
  Country: JP (occurrence: JP)
  Receive Date: 20131030
  Receipt Date: 20131107
  Transmission Date: 20140711
  Serious: Yes (Hospitalization)
  Sender: FDA-Public Use
  Company Number: JP-SA-2013SA110192

PATIENT
  Age: 69 Year
  Sex: Male

DRUGS (3)
  1. MYSLEE [Suspect]
     Indication: PRODUCT USED FOR UNKNOWN INDICATION
     Route: 048
     Dates: start: 2011, end: 2013
  2. PRIMPERAN [Suspect]
     Indication: GASTRITIS
     Route: 048
     Dates: start: 2011, end: 2013
  3. PRIMPERAN [Suspect]
     Indication: GASTRIC ULCER
     Route: 048
     Dates: start: 2011, end: 2013

REACTIONS (1)
  - Liver disorder [Recovering/Resolving]
